FAERS Safety Report 6552428-1 (Version None)
Quarter: 2010Q1

REPORT INFORMATION
  Report Type: 
  Country: None (occurrence: None)
  Receive Date: 20100121
  Receipt Date: 20100107
  Transmission Date: 20100710
  Serious: Yes (Death)
  Sender: FDA-Public Use
  Company Number: 2010010013

PATIENT
  Age: 54 Year
  Sex: Female

DRUGS (4)
  1. SOMA [Suspect]
     Dosage: (250 MG), ORAL
     Route: 048
  2. PLAVIX [Suspect]
     Dosage: ORAL
     Route: 048
  3. METOPROLOL SUCCINATE EXTENDED RELEASE [Suspect]
     Dosage: (25 MG), ORAL
     Route: 048
  4. VALIUM [Suspect]
     Dosage: (1 TABLET), ORAL
     Route: 048

REACTIONS (13)
  - BLOOD ALBUMIN DECREASED [None]
  - BLOOD CALCIUM DECREASED [None]
  - BLOOD GLUCOSE INCREASED [None]
  - BLOOD SODIUM DECREASED [None]
  - CARDIOVASCULAR DISORDER [None]
  - CIRCULATORY COLLAPSE [None]
  - COMPLETED SUICIDE [None]
  - HYPOTENSION [None]
  - INFUSION SITE HAEMORRHAGE [None]
  - PCO2 DECREASED [None]
  - PROTEIN TOTAL DECREASED [None]
  - PROTHROMBIN TIME PROLONGED [None]
  - SINUS BRADYCARDIA [None]
